FAERS Safety Report 18427279 (Version 1)
Quarter: 2020Q4

REPORT INFORMATION
  Report Type: Spontaneous
  Country: FR (occurrence: FR)
  Receive Date: 20201026
  Receipt Date: 20201026
  Transmission Date: 20210114
  Serious: Yes (Other)
  Sender: FDA-Public Use
  Company Number: FR-ROCHE-2702223

PATIENT
  Age: 57 Year
  Sex: Female

DRUGS (4)
  1. ROVALCYTE [Suspect]
     Active Substance: VALGANCICLOVIR HYDROCHLORIDE
     Indication: CYTOMEGALOVIRUS INFECTION REACTIVATION
     Route: 065
     Dates: end: 20200220
  2. ROVALCYTE [Suspect]
     Active Substance: VALGANCICLOVIR HYDROCHLORIDE
     Dosage: 450MG X 1/D?DATE OF MOST RECENT DOSE RECEIVED PRIOR TO EVENT ONSET: 09/APR/2020
     Route: 065
     Dates: start: 20200326
  3. ROVALCYTE [Suspect]
     Active Substance: VALGANCICLOVIR HYDROCHLORIDE
     Route: 065
     Dates: start: 20200303
  4. PREVYMIS [Suspect]
     Active Substance: LETERMOVIR
     Indication: PROPHYLAXIS
     Route: 048
     Dates: start: 20200410

REACTIONS (1)
  - Cytomegalovirus infection reactivation [Unknown]

NARRATIVE: CASE EVENT DATE: 20200420
